FAERS Safety Report 15100474 (Version 2)
Quarter: 2018Q3

REPORT INFORMATION
  Report Type: Report from Study
  Country: BE (occurrence: BE)
  Receive Date: 20180703
  Receipt Date: 20180829
  Transmission Date: 20181010
  Serious: Yes (Other)
  Sender: FDA-Public Use
  Company Number: BE-BIOGEN-2018BI00602589

PATIENT
  Age: 37 Year
  Sex: Female

DRUGS (3)
  1. TYSABRI [Suspect]
     Active Substance: NATALIZUMAB
     Indication: RELAPSING-REMITTING MULTIPLE SCLEROSIS
     Dosage: INFUSED OVER 1 HOUR
     Route: 042
     Dates: start: 20101006
  2. SATIVEX [Concomitant]
     Active Substance: NABIXIMOLS
     Indication: MUSCLE SPASTICITY
     Dosage: 4 PUFFS PER DAY
     Route: 065
     Dates: start: 20160812
  3. FAMPYRA [Suspect]
     Active Substance: DALFAMPRIDINE
     Indication: MUSCLE FATIGUE
     Route: 048
     Dates: start: 20140512

REACTIONS (2)
  - Abortion spontaneous [Recovered/Resolved]
  - Maternal exposure during pregnancy [Recovered/Resolved]

NARRATIVE: CASE EVENT DATE: 20171113
